FAERS Safety Report 8088742-0 (Version None)
Quarter: 2012Q1

REPORT INFORMATION
  Report Type: 
  Country: None (occurrence: None)
  Receive Date: 20120128
  Receipt Date: 20110601
  Transmission Date: 20120608
  Serious: No
  Sender: FDA-Public Use
  Company Number: US-ABBOTT-11P-163-0729843-00

PATIENT
  Sex: Male

DRUGS (1)
  1. HUMIRA [Suspect]
     Indication: PSORIASIS
     Dates: end: 20110401

REACTIONS (6)
  - DIZZINESS [None]
  - TREMOR [None]
  - NAUSEA [None]
  - PALPITATIONS [None]
  - DRUG EFFECT INCREASED [None]
  - ASTHENIA [None]
